FAERS Safety Report 19912114 (Version 1)
Quarter: 2021Q4

REPORT INFORMATION
  Report Type: Spontaneous
  Country: US (occurrence: US)
  Receive Date: 20211001
  Receipt Date: 20211001
  Transmission Date: 20220303
  Serious: No
  Sender: FDA-Public Use
  Company Number: None

PATIENT
  Sex: Female

DRUGS (1)
  1. FORTEO [Suspect]
     Active Substance: TERIPARATIDE
     Indication: Osteoporosis
     Dosage: ?          OTHER DOSE:20 MCG;
     Route: 058
     Dates: start: 20210722, end: 20210930

REACTIONS (3)
  - Bone pain [None]
  - Injection site urticaria [None]
  - Alopecia [None]
